FAERS Safety Report 15760038 (Version 2)
Quarter: 2018Q4

REPORT INFORMATION
  Report Type: Spontaneous
  Country: IE (occurrence: IE)
  Receive Date: 20181226
  Receipt Date: 20181226
  Transmission Date: 20190205
  Serious: Yes (Other)
  Sender: FDA-Public Use
  Company Number: PHHY2018IE194120

PATIENT
  Age: 41 Year
  Sex: Male

DRUGS (3)
  1. CICLOSPORIN [Suspect]
     Active Substance: CYCLOSPORINE
     Indication: STEM CELL TRANSPLANT
     Dosage: 5 MG/KG, BID
     Route: 048
  2. RITUXIMAB. [Suspect]
     Active Substance: RITUXIMAB
     Indication: STEM CELL TRANSPLANT
     Dosage: 375 MG/M2, UNK
     Route: 041
  3. MYCOPHENOLATE MOFETIL. [Suspect]
     Active Substance: MYCOPHENOLATE MOFETIL
     Indication: STEM CELL TRANSPLANT
     Dosage: 15 MG/KG, BID
     Route: 048

REACTIONS (2)
  - Product use in unapproved indication [Unknown]
  - Autoimmune haemolytic anaemia [Unknown]
